FAERS Safety Report 18126549 (Version 3)
Quarter: 2020Q3

REPORT INFORMATION
  Report Type: Spontaneous
  Country: US (occurrence: US)
  Receive Date: 20200808
  Receipt Date: 20200822
  Transmission Date: 20201103
  Serious: Yes (Hospitalization, Other)
  Sender: FDA-Public Use
  Company Number: US-009507513-2008USA000300

PATIENT
  Age: 1 Day
  Sex: Male
  Weight: 2.3 kg

DRUGS (9)
  1. REMERON [Suspect]
     Active Substance: MIRTAZAPINE
     Dosage: UNK
     Route: 064
     Dates: end: 20170828
  2. BUSPAR [Suspect]
     Active Substance: BUSPIRONE HYDROCHLORIDE
     Dosage: UNK
     Route: 064
     Dates: end: 20170828
  3. ESTRADIOL. [Suspect]
     Active Substance: ESTRADIOL
     Dosage: CONTINUED TILL 12 WEEKS OF PREGNANCY
     Route: 064
  4. PROGESTERONE. [Suspect]
     Active Substance: PROGESTERONE
     Dosage: CONTINUED TILL 12 WEEKS OF PREGNANCY
     Route: 064
  5. LEVOTHYROXINE SODIUM. [Suspect]
     Active Substance: LEVOTHYROXINE SODIUM
     Dosage: UNK
     Route: 064
     Dates: end: 20170828
  6. HUMULIN NOS [Suspect]
     Active Substance: INSULIN HUMAN
     Dosage: UNK
     Route: 064
     Dates: end: 20170828
  7. ABILIFY [Suspect]
     Active Substance: ARIPIPRAZOLE
     Dosage: UNK
     Route: 064
     Dates: end: 20170828
  8. PROZAC [Suspect]
     Active Substance: FLUOXETINE HYDROCHLORIDE
     Dosage: UNK
     Route: 064
     Dates: end: 20170828
  9. HUMALOG [Suspect]
     Active Substance: INSULIN LISPRO
     Dosage: UNK
     Route: 064
     Dates: end: 20170828

REACTIONS (4)
  - Foetal exposure during pregnancy [Recovered/Resolved]
  - Neonatal respiratory distress [Recovered/Resolved]
  - Premature baby [Unknown]
  - Transient tachypnoea of the newborn [Recovered/Resolved]

NARRATIVE: CASE EVENT DATE: 20170828
